FAERS Safety Report 4679797-1 (Version None)
Quarter: 2005Q2

REPORT INFORMATION
  Report Type: 
  Country: None (occurrence: None)
  Receive Date: 20050602
  Receipt Date: 20050509
  Transmission Date: 20051028
  Serious: Yes (Other)
  Sender: FDA-Public Use
  Company Number: AU-MERCK-0505AUS00117

PATIENT
  Age: 75 Year
  Sex: Female

DRUGS (7)
  1. ZETIA [Suspect]
     Indication: METABOLIC DISORDER
     Route: 048
     Dates: start: 20011115, end: 20050215
  2. ALBUTEROL SULFATE [Concomitant]
     Route: 065
  3. LEVOTHYROXINE SODIUM [Concomitant]
     Route: 065
  4. OMEPRAZOLE [Concomitant]
     Route: 065
  5. FLUTICASONE PROPIONATE AND SALMETEROL XINAFOATE [Concomitant]
     Route: 055
  6. IRBESARTAN [Concomitant]
     Route: 065
  7. ASPIRIN [Concomitant]
     Route: 065

REACTIONS (5)
  - HEPATITIS [None]
  - HEPATOCELLULAR DAMAGE [None]
  - LETHARGY [None]
  - MUSCULAR WEAKNESS [None]
  - TREMOR [None]
